FAERS Safety Report 5545421-9 (Version None)
Quarter: 2007Q4

REPORT INFORMATION
  Report Type: 
  Country: None (occurrence: None)
  Receive Date: 20071211
  Receipt Date: 20071205
  Transmission Date: 20080405
  Serious: Yes (Other)
  Sender: FDA-Public Use
  Company Number: PHEH2006US01632

PATIENT
  Age: 68 Year
  Sex: Male
  Weight: 91.156 kg

DRUGS (11)
  1. ZOMETA [Suspect]
     Indication: MULTIPLE MYELOMA
     Dosage: 4 MG MONTHLY
     Dates: start: 20031101, end: 20050901
  2. ZOMETA [Suspect]
     Dosage: 3.5 MG MONTHLY
     Dates: start: 20031101, end: 20050901
  3. AREDIA [Suspect]
     Indication: MULTIPLE MYELOMA
     Dosage: 90 MG MONTHLY
     Dates: start: 20020201, end: 20031001
  4. VINCRISTINE + ADRIAMYCIN + DEXAMETHASONE [Concomitant]
  5. PREDNISONE [Concomitant]
     Dosage: 50 MG, QOD
  6. THALIDOMIDE [Concomitant]
     Indication: MULTIPLE MYELOMA
     Dates: start: 20020101
  7. MELPHALAN [Concomitant]
  8. PLAVIX [Concomitant]
     Dosage: 75 MG, QD
  9. LORTAB [Concomitant]
     Dosage: 500 MG, PRN
  10. GLYBURIDE [Concomitant]
     Dosage: UNK, QD
  11. ZANTAC [Concomitant]
     Dosage: 150 MG, QD

REACTIONS (18)
  - ANXIETY [None]
  - BONE DISORDER [None]
  - BONE EROSION [None]
  - COMPRESSION FRACTURE [None]
  - DECREASED INTEREST [None]
  - ERYTHEMA [None]
  - LYMPHADENOPATHY [None]
  - NECK MASS [None]
  - OEDEMA MUCOSAL [None]
  - OSTEOLYSIS [None]
  - OSTEONECROSIS [None]
  - PAIN [None]
  - SKIN LESION [None]
  - SOFT TISSUE DISORDER [None]
  - TOOTH EXTRACTION [None]
  - WOUND DEBRIDEMENT [None]
  - WOUND DRAINAGE [None]
  - WOUND HAEMORRHAGE [None]
